FAERS Safety Report 19036908 (Version 1)
Quarter: 2021Q1

REPORT INFORMATION
  Report Type: Spontaneous
  Country: US (occurrence: US)
  Receive Date: 20210320
  Receipt Date: 20210320
  Transmission Date: 20210420
  Serious: Yes (Hospitalization)
  Sender: FDA-Public Use
  Company Number: None

PATIENT
  Age: 83 Year
  Sex: Male
  Weight: 65 kg

DRUGS (4)
  1. PLAVIX [Concomitant]
     Active Substance: CLOPIDOGREL BISULFATE
  2. ASPIRIN. [Concomitant]
     Active Substance: ASPIRIN
  3. CASODEX [Suspect]
     Active Substance: BICALUTAMIDE
     Dates: end: 20160913
  4. LEUPROLIDE ACETATE. [Suspect]
     Active Substance: LEUPROLIDE ACETATE
     Dates: end: 20171031

REACTIONS (6)
  - Fatigue [None]
  - Haemoglobin decreased [None]
  - Frequent bowel movements [None]
  - Haemorrhoids [None]
  - Gastrointestinal angiodysplasia [None]
  - Radiation proctitis [None]

NARRATIVE: CASE EVENT DATE: 20210227
